FAERS Safety Report 4833084-7 (Version None)
Quarter: 2005Q4

REPORT INFORMATION
  Report Type: 
  Country: None (occurrence: None)
  Receive Date: 20051117
  Receipt Date: 20051107
  Transmission Date: 20060501
  Serious: No
  Sender: FDA-Public Use
  Company Number: 05H-163-0303479-00

PATIENT

DRUGS (3)
  1. SODIUM CHLORIDE INJ [Suspect]
     Indication: BRAIN OEDEMA
  2. SODIUM ACETATE INJECTION (SODIUM ACETATE) (SODIUM ACETATE) [Suspect]
     Indication: ACIDOSIS HYPERCHLORAEMIC
     Dosage: INTRAVENOUS INFUSION
     Route: 042
  3. SODIUM ACETATE INJECTION (SODIUM ACETATE) (SODIUM ACETATE) [Suspect]
     Indication: BRAIN OEDEMA
     Dosage: INTRAVENOUS INFUSION
     Route: 042

REACTIONS (1)
  - PNEUMONIA [None]
